FAERS Safety Report 6275640-8 (Version None)
Quarter: 2009Q3

REPORT INFORMATION
  Report Type: 
  Country: None (occurrence: None)
  Receive Date: 20090721
  Receipt Date: 20090713
  Transmission Date: 20100115
  Serious: Yes (Other)
  Sender: FDA-Public Use
  Company Number: CA-WYE-H10142809

PATIENT
  Age: 3 Year
  Sex: Female

DRUGS (1)
  1. ADVIL [Suspect]
     Dosage: TOOK SOME LIQUI-GELS, UNABLE TO CONFIRM HOW MANY
     Route: 048
     Dates: start: 20090704, end: 20090704

REACTIONS (2)
  - ACCIDENTAL DRUG INTAKE BY CHILD [None]
  - ACCIDENTAL OVERDOSE [None]
